FAERS Safety Report 7776275-8 (Version None)
Quarter: 2011Q3

REPORT INFORMATION
  Report Type: 
  Country: None (occurrence: None)
  Receive Date: 20110926
  Receipt Date: 20110913
  Transmission Date: 20111222
  Serious: No
  Sender: FDA-Public Use
  Company Number: FR-JNJFOC-20110907853

PATIENT
  Age: 43 Year
  Sex: Male

DRUGS (2)
  1. ACTIQ [Concomitant]
     Indication: GRAFT COMPLICATION
     Route: 065
  2. DURAGESIC-100 [Suspect]
     Indication: GRAFT COMPLICATION
     Route: 062

REACTIONS (1)
  - TREATMENT NONCOMPLIANCE [None]
